FAERS Safety Report 18043767 (Version 1)
Quarter: 2020Q3

REPORT INFORMATION
  Report Type: Spontaneous
  Country: US (occurrence: US)
  Receive Date: 20200720
  Receipt Date: 20200720
  Transmission Date: 20201103
  Serious: No
  Sender: FDA-Public Use
  Company Number: None

PATIENT
  Age: 36 Year
  Sex: Male

DRUGS (1)
  1. ERENUMAB?AOOE(ERENUMAB?AOOE 140MG/ML AUTOINJECTOR,1ML [Suspect]
     Active Substance: ERENUMAB-AOOE
     Route: 058
     Dates: start: 20200403, end: 20200403

REACTIONS (4)
  - Dizziness [None]
  - Vomiting [None]
  - Headache [None]
  - Nausea [None]

NARRATIVE: CASE EVENT DATE: 20200403
